FAERS Safety Report 4707868-X (Version None)
Quarter: 2005Q3

REPORT INFORMATION
  Report Type: 
  Country: None (occurrence: None)
  Receive Date: 20050705
  Receipt Date: 20050705
  Transmission Date: 20060218
  Serious: Yes (Life-Threatening, Hospitalization, Disabling)
  Sender: FDA-Public Use
  Company Number: None

PATIENT
  Age: 36 Year
  Sex: Female
  Weight: 63.5036 kg

DRUGS (2)
  1. DEPAKOTE [Suspect]
     Indication: EPILEPSY
  2. DEPAKOTE [Suspect]

REACTIONS (3)
  - NEOPLASM [None]
  - PANCREATITIS CHRONIC [None]
  - PSEUDOCYST [None]
